FAERS Safety Report 8285175-9 (Version None)
Quarter: 2012Q2

REPORT INFORMATION
  Report Type: 
  Country: None (occurrence: None)
  Receive Date: 20120413
  Receipt Date: 20120109
  Transmission Date: 20120825
  Serious: No
  Sender: FDA-Public Use
  Company Number: US-ASTRAZENECA-2011SE76289

PATIENT
  Age: 52 Year
  Sex: Female

DRUGS (2)
  1. RANITIDINE [Concomitant]
  2. NEXIUM [Suspect]
     Route: 048

REACTIONS (12)
  - APHAGIA [None]
  - DRUG DOSE OMISSION [None]
  - DYSPNOEA [None]
  - GASTROOESOPHAGEAL REFLUX DISEASE [None]
  - ASTHENIA [None]
  - MALAISE [None]
  - ODYNOPHAGIA [None]
  - CHEST DISCOMFORT [None]
  - NAUSEA [None]
  - INSOMNIA [None]
  - DYSPHAGIA [None]
  - PHARYNGEAL INFLAMMATION [None]
